FAERS Safety Report 7225646-7 (Version None)
Quarter: 2011Q1

REPORT INFORMATION
  Report Type: 
  Country: None (occurrence: None)
  Receive Date: 20110113
  Receipt Date: 20110106
  Transmission Date: 20110831
  Serious: Yes (Hospitalization)
  Sender: FDA-Public Use
  Company Number: DE-JNJCH-2010019504

PATIENT
  Sex: Female

DRUGS (1)
  1. ROGAINE [Suspect]
     Indication: PRODUCT USED FOR UNKNOWN INDICATION
     Dosage: TEXT:UNKNOWN
     Route: 061

REACTIONS (6)
  - ATRIAL FIBRILLATION [None]
  - PALPITATIONS [None]
  - TACHYCARDIA [None]
  - CONDITION AGGRAVATED [None]
  - ALOPECIA [None]
  - DRUG ADMINISTRATION ERROR [None]
